FAERS Safety Report 23309467 (Version 1)
Quarter: 2023Q4

REPORT INFORMATION
  Report Type: Report from Study
  Country: GB (occurrence: GB)
  Receive Date: 20231218
  Receipt Date: 20231218
  Transmission Date: 20240110
  Serious: Yes (Other)
  Sender: FDA-Public Use
  Company Number: GB-SANDOZ-SDZ2023GB032204

PATIENT
  Sex: Female

DRUGS (1)
  1. HYRIMOZ [Suspect]
     Active Substance: ADALIMUMAB-ADAZ
     Indication: Rheumatoid arthritis
     Dosage: 40 MG, Q2W
     Route: 058

REACTIONS (5)
  - Rheumatoid arthritis [Not Recovered/Not Resolved]
  - Abdominal pain [Recovering/Resolving]
  - Frequent bowel movements [Recovering/Resolving]
  - Anxiety [Recovered/Resolved]
  - Abdominal pain upper [Unknown]
